FAERS Safety Report 8828927 (Version 3)
Quarter: 2012Q4

REPORT INFORMATION
  Report Type: 
  Country: GB (occurrence: GB)
  Receive Date: 20121008
  Receipt Date: 20121030
  Transmission Date: 20130627
  Serious: Yes (Other)
  Sender: FDA-Public Use
  Company Number: GB-B.I. PHARMACEUTICALS,INC./RIDGEFIELD-2012-UK-01313UK

PATIENT
  Age: 65 None
  Sex: Female
  Weight: 85 kg

DRUGS (28)
  1. DABIGATRAN [Suspect]
     Indication: THROMBOSIS PROPHYLAXIS
     Dosage: 220 mg
     Route: 048
     Dates: start: 20120915, end: 20120916
  2. DABIGATRAN [Suspect]
  3. ENOXAPARIN [Concomitant]
     Indication: THROMBOSIS PROPHYLAXIS
     Dosage: 40 mg
     Route: 058
     Dates: start: 20120912, end: 20120914
  4. OMEPRAZOLE [Concomitant]
     Dosage: 20 mg
     Route: 048
  5. SIMVASTATIN [Concomitant]
     Dosage: 40 mg
     Route: 048
  6. PARACETAMOL [Concomitant]
     Indication: ANALGESIC THERAPY
     Dosage: 4 g
     Route: 048
  7. ONDANSETRON [Concomitant]
     Indication: PROCEDURAL NAUSEA
     Dosage: 4mg tds prn
     Route: 048
     Dates: start: 20120912, end: 20120915
  8. ONDANSETRON [Concomitant]
     Indication: PROCEDURAL VOMITING
  9. ORAMORPH [Concomitant]
     Indication: BREAKTHROUGH PAIN
     Dosage: 20mg prn - 2 doses given
     Route: 048
     Dates: start: 20120913, end: 20120913
  10. CODEINE PHOSPATE [Concomitant]
     Indication: ANALGESIC THERAPY
     Dosage: 30-60mg qds prn
     Route: 048
     Dates: end: 20120915
  11. DICLOFENAC [Concomitant]
     Indication: ANALGESIC THERAPY
     Dosage: 50 mg
     Route: 054
     Dates: start: 20120913, end: 20120913
  12. DICLOFENAC [Concomitant]
     Dosage: 50mg tds prn
     Route: 048
     Dates: start: 20120914, end: 20120916
  13. HARTMANNS [Concomitant]
     Indication: FLUID REPLACEMENT
     Dosage: 3 litres
     Route: 042
     Dates: start: 20120912, end: 20120912
  14. VOLULYTE [Concomitant]
     Indication: FLUID REPLACEMENT
     Dosage: 1 litre
     Route: 042
     Dates: start: 20120912, end: 20120912
  15. CEFUROXIME [Concomitant]
     Indication: PROPHYLAXIS
     Dosage: 1.5 g
     Route: 042
     Dates: start: 20120912, end: 20120912
  16. GENTAMICIN [Concomitant]
     Indication: PROPHYLAXIS
     Dosage: 160 mg
     Route: 042
     Dates: start: 20120912, end: 20120912
  17. NAROPIN [Concomitant]
     Dosage: 40 ml
     Dates: start: 20120912, end: 20120912
  18. ADRENALINE [Concomitant]
     Dosage: 1:200000 Infiltrated into capsule
     Dates: start: 20120912, end: 20120912
  19. PROPOFOL [Concomitant]
     Dosage: 0.5 (Units not specified)
     Route: 042
     Dates: start: 20120912, end: 20120912
  20. METARAMINOL [Concomitant]
     Indication: BLOOD PRESSURE DECREASED
     Dosage: 1.5 mg
     Route: 042
     Dates: start: 20120912, end: 20120912
  21. ONDANSETRON [Concomitant]
     Indication: PROPHYLAXIS OF NAUSEA AND VOMITING
     Dosage: 4 mg
     Route: 048
     Dates: start: 20120912, end: 20120912
  22. ONDANSETRON [Concomitant]
     Dosage: As required
  23. DEXAMETHASONE [Concomitant]
     Indication: PROPHYLAXIS OF NAUSEA AND VOMITING
     Dosage: 8 mg
     Route: 042
     Dates: start: 20120912, end: 20120912
  24. HEAVY MARCAIN [Concomitant]
     Indication: SPINAL ANAESTHESIA
     Dosage: 3 ml
     Dates: start: 20120912, end: 20120912
  25. DIAMORPHINE [Concomitant]
     Indication: SPINAL ANAESTHESIA
     Dosage: 500 mcg
     Dates: start: 20120912, end: 20120912
  26. GARLIC [Concomitant]
  27. COD LIVER OIL [Concomitant]
  28. GLUCOSAMINE [Concomitant]

REACTIONS (11)
  - Clostridium difficile infection [Not Recovered/Not Resolved]
  - Nausea [Recovered/Resolved]
  - Vomiting [Not Recovered/Not Resolved]
  - Diarrhoea [Not Recovered/Not Resolved]
  - Abdominal pain upper [Not Recovered/Not Resolved]
  - Vomiting [Not Recovered/Not Resolved]
  - Perineal pain [Not Recovered/Not Resolved]
  - Anal haemorrhage [Not Recovered/Not Resolved]
  - Decreased appetite [Unknown]
  - Stress [Unknown]
  - Nausea [Unknown]
